FAERS Safety Report 8775854 (Version 3)
Quarter: 2013Q1

REPORT INFORMATION
  Report Type: Spontaneous
  Country: US (occurrence: US)
  Receive Date: 20120910
  Receipt Date: 20130306
  Transmission Date: 20140127
  Serious: No
  Sender: FDA-Public Use
  Company Number: US-009507513-1208USA003233

PATIENT
  Age: 4 Year
  Sex: Male
  Weight: 18.2 kg

DRUGS (11)
  1. ASMANEX TWISTHALER [Suspect]
     Indication: ASTHMA
     Dosage: 110 MICROGRAM, BID
     Route: 055
     Dates: start: 20120721
  2. ASMANEX TWISTHALER [Suspect]
     Indication: HYPERSENSITIVITY
  3. PREVACID [Concomitant]
  4. CLARITIN [Concomitant]
  5. BENADRYL [Concomitant]
  6. PROAIR (ALBUTEROL SULFATE) [Concomitant]
  7. EPIPEN [Concomitant]
     Indication: ANAPHYLACTIC REACTION
     Dosage: UNK, PRN
     Route: 030
  8. NASONEX [Concomitant]
     Indication: HYPERSENSITIVITY
     Dosage: 1 DF, UNK, 1 SPRAY
     Route: 045
  9. PATANASE [Concomitant]
     Indication: HYPERSENSITIVITY
     Dosage: 1 DF, UNK, 1 SPRAY
     Route: 045
  10. ALLEGRA [Concomitant]
     Indication: HYPERSENSITIVITY
     Dosage: UNK
     Route: 048
  11. ALBUTEROL [Concomitant]
     Indication: INHALATION THERAPY
     Dosage: UNK, PRN

REACTIONS (4)
  - Drug dose omission [Unknown]
  - Sleep disorder [Recovering/Resolving]
  - Nasal congestion [Recovering/Resolving]
  - Incorrect dose administered [Unknown]
